FAERS Safety Report 7442958-2 (Version None)
Quarter: 2011Q2

REPORT INFORMATION
  Report Type: 
  Country: None (occurrence: None)
  Receive Date: 20110425
  Receipt Date: 20110425
  Transmission Date: 20111010
  Serious: Yes (Other)
  Sender: FDA-Public Use
  Company Number: None

PATIENT
  Age: 6 Year
  Sex: Female
  Weight: 36.2878 kg

DRUGS (1)
  1. VYVANSE [Suspect]
     Indication: ATTENTION DEFICIT/HYPERACTIVITY DISORDER
     Dosage: 1 CAPSULE IN A.M. ONCE A DAY PO
     Route: 048
     Dates: start: 20110422, end: 20110422

REACTIONS (3)
  - DRY MOUTH [None]
  - DYSKINESIA [None]
  - MOOD ALTERED [None]
